FAERS Safety Report 21377570 (Version 1)
Quarter: 2022Q3

REPORT INFORMATION
  Report Type: Spontaneous
  Country: SA (occurrence: SA)
  Receive Date: 20220926
  Receipt Date: 20220926
  Transmission Date: 20221026
  Serious: Yes (Other)
  Sender: FDA-Public Use
  Company Number: SA-PFIZER INC-202201177750

PATIENT
  Age: 19 Year
  Sex: Female

DRUGS (5)
  1. PHENYTOIN [Interacting]
     Active Substance: PHENYTOIN
     Indication: Epilepsy
     Dosage: 100 MG, 3X/DAY
     Route: 042
  2. PERAMPANEL [Interacting]
     Active Substance: PERAMPANEL
     Indication: Epilepsy
     Dosage: 6 MG, DAILY
     Route: 042
  3. LEVETIRACETAM [Concomitant]
     Active Substance: LEVETIRACETAM
     Indication: Epilepsy
     Dosage: 1500 MG, 2X/DAY
     Route: 042
  4. LACOSAMIDE [Concomitant]
     Active Substance: LACOSAMIDE
     Indication: Epilepsy
     Dosage: 200 MG, 2X/DAY
     Route: 042
  5. PHENOBARBITAL [Concomitant]
     Active Substance: PHENOBARBITAL
     Indication: Epilepsy
     Dosage: UNK, SINGLE

REACTIONS (2)
  - Drug interaction [Unknown]
  - Anticonvulsant drug level increased [Unknown]
